FAERS Safety Report 6607952-X (Version None)
Quarter: 2010Q1

REPORT INFORMATION
  Report Type: 
  Country: None (occurrence: None)
  Receive Date: 20100301
  Receipt Date: 20100224
  Transmission Date: 20100710
  Serious: Yes (Life-Threatening, Hospitalization)
  Sender: FDA-Public Use
  Company Number: US-ASTRAZENECA-2010SE01247

PATIENT
  Age: 61 Year
  Sex: Male

DRUGS (26)
  1. CASODEX [Suspect]
     Indication: PROSTATE CANCER
     Route: 048
     Dates: start: 20090914
  2. DOCETAXEL [Suspect]
     Indication: PROSTATE CANCER
     Route: 042
     Dates: start: 20090916, end: 20091223
  3. LUPRON [Suspect]
     Indication: PROSTATE CANCER
     Route: 030
     Dates: start: 20090916
  4. OPIATE [Suspect]
  5. ELAVIL [Concomitant]
     Route: 065
  6. FLOMAX [Concomitant]
     Route: 065
  7. ZOLOFT [Concomitant]
     Route: 065
  8. TRIAMCINOLONE [Concomitant]
     Route: 065
  9. METFORMIN HYDROCHLORIDE [Concomitant]
     Route: 065
  10. CLOPIDOGREL [Concomitant]
     Route: 065
  11. HYDROCHLOROTHIAZIDE [Concomitant]
     Route: 065
  12. ASPIRIN [Concomitant]
     Route: 065
  13. LIPITOR [Concomitant]
     Route: 065
  14. GLIMEPIRIDE [Concomitant]
     Route: 065
  15. IMDUR [Concomitant]
     Route: 065
  16. BENAZEPRIL HYDROCHLORIDE [Concomitant]
     Route: 065
  17. CARVEDILOL [Concomitant]
     Route: 065
  18. TOLTERODINE TARTRATE [Concomitant]
     Route: 065
  19. ZOFRAN [Concomitant]
  20. PLAVIX [Concomitant]
  21. OMEPRAZOLE [Concomitant]
  22. GABAPENTIN [Concomitant]
  23. DITROPAN [Concomitant]
  24. CARVEDILOL [Concomitant]
  25. PHENAZOPYRIDINE HCL TAB [Concomitant]
  26. DEXAMETHASONE [Concomitant]

REACTIONS (2)
  - ACCIDENTAL OVERDOSE [None]
  - INTERSTITIAL LUNG DISEASE [None]
